FAERS Safety Report 8244572-8 (Version None)
Quarter: 2012Q1

REPORT INFORMATION
  Report Type: 
  Country: None (occurrence: None)
  Receive Date: 20120329
  Receipt Date: 20120326
  Transmission Date: 20120608
  Serious: Yes (Death)
  Sender: FDA-Public Use
  Company Number: US-CELGENEUS-163-21880-12032941

PATIENT
  Sex: Male

DRUGS (6)
  1. NAPROXEN (ALEVE) [Concomitant]
     Route: 065
  2. EXJADE [Concomitant]
     Route: 065
  3. MULTI-VITAMINS [Concomitant]
     Route: 065
  4. VITAMIN B-12 [Concomitant]
     Route: 050
  5. REVLIMID [Suspect]
     Dosage: 10 MILLIGRAM
     Route: 048
     Dates: start: 20110616
  6. ASPIRIN [Concomitant]
     Route: 065

REACTIONS (1)
  - DEATH [None]
